FAERS Safety Report 4376707-1 (Version None)
Quarter: 2004Q2

REPORT INFORMATION
  Report Type: 
  Country: None (occurrence: None)
  Receive Date: 20040608
  Receipt Date: 20040526
  Transmission Date: 20050107
  Serious: Yes (Hospitalization, Other)
  Sender: FDA-Public Use
  Company Number: 2004035477

PATIENT
  Age: 79 Year
  Sex: Male
  Weight: 77.1115 kg

DRUGS (6)
  1. VIAGRA [Suspect]
     Indication: ILL-DEFINED DISORDER
     Dosage: 50 MG (50 MG AS NEEDED) ORAL
     Route: 048
     Dates: start: 20040201, end: 20040101
  2. CARVEDILOL [Concomitant]
  3. ALL OTHER THERAPEUTIC PRODUCTS [Concomitant]
  4. GLYCERYL TRINITRATE [Concomitant]
  5. MULTIVITAMINS (ASCORBIC ACID, ERGOCALCIFEROL, FOLIC ACID, NICOTINAMIDE [Concomitant]
  6. ASPIRIN [Concomitant]

REACTIONS (4)
  - CEREBROVASCULAR ACCIDENT [None]
  - EYE DISORDER [None]
  - HYPOAESTHESIA [None]
  - INGROWING NAIL [None]
